FAERS Safety Report 8857564 (Version 2)
Quarter: 2013Q1

REPORT INFORMATION
  Report Type: Spontaneous
  Country: US (occurrence: US)
  Receive Date: 20121024
  Receipt Date: 20130109
  Transmission Date: 20140127
  Serious: No
  Sender: FDA-Public Use
  Company Number: US-009507513-1210USA007364

PATIENT
  Age: 69 Year
  Sex: Female

DRUGS (1)
  1. COSOPT [Suspect]
     Dosage: 1 DROP BOTH EYES 2 X A DAY
     Route: 047
     Dates: start: 20120802

REACTIONS (4)
  - Conjunctival haemorrhage [Unknown]
  - Corneal abrasion [Unknown]
  - Eye injury [Unknown]
  - Product quality issue [Unknown]
